FAERS Safety Report 23167115 (Version 1)
Quarter: 2023Q4

REPORT INFORMATION
  Report Type: Spontaneous
  Country: US (occurrence: None)
  Receive Date: 20231109
  Receipt Date: 20231109
  Transmission Date: 20240110
  Serious: No
  Sender: FDA-Public Use
  Company Number: None

PATIENT
  Sex: Female

DRUGS (5)
  1. BOTOX [Suspect]
     Active Substance: ONABOTULINUMTOXINA
     Indication: Dystonia
     Dosage: OTHER QUANTITY : 100 UNIT;?FREQUENCY : AS DIRECTED;?
     Dates: start: 20221228
  2. BACLOFEN [Concomitant]
     Active Substance: BACLOFEN
  3. CYCLBENZAPR [Concomitant]
  4. FLUOXETINE [Concomitant]
  5. SERTRALINE [Concomitant]

REACTIONS (1)
  - Seizure [None]
